FAERS Safety Report 26076041 (Version 1)
Quarter: 2025Q4

REPORT INFORMATION
  Report Type: Spontaneous
  Country: CH (occurrence: CH)
  Receive Date: 20251121
  Receipt Date: 20251121
  Transmission Date: 20260118
  Serious: Yes (Life-Threatening, Hospitalization, Disabling, Other)
  Sender: BRISTOL-MYERS SQUIBB COMPANY
  Company Number: None

PATIENT
  Age: 49 Year
  Sex: Female
  Weight: 59.800 kg

DRUGS (7)
  1. YERVOY [Suspect]
     Active Substance: IPILIMUMAB
     Indication: Metastatic malignant melanoma
     Dosage: 185 MG (3 MG/KG)
     Route: 042
     Dates: start: 20250619, end: 20250820
  2. OPDIVO [Suspect]
     Active Substance: NIVOLUMAB
     Indication: Metastatic malignant melanoma
     Route: 042
  3. OPDIVO [Suspect]
     Active Substance: NIVOLUMAB
     Route: 042
  4. DAFALGAN [Concomitant]
     Active Substance: ACETAMINOPHEN
     Indication: Product used for unknown indication
  5. METAMIZOLE [Concomitant]
     Active Substance: METAMIZOLE
     Indication: Product used for unknown indication
  6. Transipeg [Concomitant]
     Indication: Product used for unknown indication
  7. Lansoprazol Helvepharm [Concomitant]
     Indication: Product used for unknown indication

REACTIONS (2)
  - Thyroiditis [Recovering/Resolving]
  - Encephalitis [Recovering/Resolving]

NARRATIVE: CASE EVENT DATE: 20250917
